FAERS Safety Report 19591222 (Version 1)
Quarter: 2021Q3

REPORT INFORMATION
  Report Type: Spontaneous
  Country: FR (occurrence: FR)
  Receive Date: 20210721
  Receipt Date: 20210721
  Transmission Date: 20211014
  Serious: Yes (Hospitalization)
  Sender: FDA-Public Use
  Company Number: FR-OTSUKA-2019_037616

PATIENT
  Age: 48 Year
  Sex: Female
  Weight: 70 kg

DRUGS (3)
  1. TARDYFERON [Suspect]
     Active Substance: FERROUS SULFATE
     Indication: POISONING DELIBERATE
     Dosage: 18 DF, TOTAL
     Route: 048
     Dates: start: 20190312, end: 20190312
  2. ARIPIPRAZOLE. [Suspect]
     Active Substance: ARIPIPRAZOLE
     Indication: POISONING DELIBERATE
     Dosage: 280 MG, TOTAL
     Route: 048
     Dates: start: 20190312, end: 20190312
  3. BRINTELLIX [Suspect]
     Active Substance: VORTIOXETINE HYDROBROMIDE
     Indication: POISONING DELIBERATE
     Dosage: 14 DF, TOTAL
     Route: 048
     Dates: start: 20190312, end: 20190312

REACTIONS (4)
  - Hypothermia [Recovered/Resolved]
  - Intentional overdose [Unknown]
  - Somnolence [Recovered/Resolved]
  - Product use in unapproved indication [Unknown]

NARRATIVE: CASE EVENT DATE: 20190312
